FAERS Safety Report 16855739 (Version 1)
Quarter: 2019Q3

REPORT INFORMATION
  Report Type: Spontaneous
  Country: US (occurrence: US)
  Receive Date: 20190926
  Receipt Date: 20190926
  Transmission Date: 20191005
  Serious: Yes (Other)
  Sender: FDA-Public Use
  Company Number: US-AKORN PHARMACEUTICALS-2019AKN01994

PATIENT
  Age: 16 Year
  Sex: Male
  Weight: 111.57 kg

DRUGS (4)
  1. MYORISAN [Suspect]
     Active Substance: ISOTRETINOIN
     Indication: ACNE
     Dosage: 2 CAPSULES, 1X/DAY
     Route: 048
     Dates: start: 20181212
  2. BLOOD PRESSURE MEDICATION (UNSPECIFIED) [Concomitant]
  3. VITAMIN D SUPPLEMENT [Concomitant]
     Active Substance: VITAMIN D NOS
  4. ASTHMA MEDICATIONS (UNSPECIFIED) [Concomitant]

REACTIONS (8)
  - Hypothalamo-pituitary disorder [Unknown]
  - Off label use [Not Recovered/Not Resolved]
  - Clavicle fracture [Recovered/Resolved]
  - Facial paralysis [Recovered/Resolved]
  - Blood growth hormone decreased [Not Recovered/Not Resolved]
  - Road traffic accident [Recovered/Resolved]
  - Sternal fracture [Unknown]
  - Sinusitis [Unknown]

NARRATIVE: CASE EVENT DATE: 20181212
